FAERS Safety Report 17996711 (Version 3)
Quarter: 2022Q2

REPORT INFORMATION
  Report Type: Report from Study
  Country: JP (occurrence: JP)
  Receive Date: 20200708
  Receipt Date: 20220430
  Transmission Date: 20220720
  Serious: Yes (Hospitalization)
  Sender: FDA-Public Use
  Company Number: JP-JNJFOC-20120904418

PATIENT
  Age: 40 Year
  Sex: Male
  Weight: 90 kg

DRUGS (9)
  1. TRABECTEDIN [Suspect]
     Active Substance: TRABECTEDIN
     Indication: Myxoid liposarcoma
     Dosage: INFUSED OVER 24 HOURS FIRST CYCLE
     Route: 042
     Dates: start: 20120821, end: 20120822
  2. TRABECTEDIN [Suspect]
     Active Substance: TRABECTEDIN
     Route: 042
     Dates: start: 20120927
  3. LOXOPROFEN SODIUM [Suspect]
     Active Substance: LOXOPROFEN SODIUM
     Indication: Tumour pain
     Route: 048
     Dates: start: 20120620
  4. DECADRON [Concomitant]
     Active Substance: DEXAMETHASONE
     Route: 042
     Dates: start: 20120821, end: 20120821
  5. ALOXI [Concomitant]
     Active Substance: PALONOSETRON HYDROCHLORIDE
     Route: 042
     Dates: start: 20120821, end: 20120821
  6. TEPRENONE [Concomitant]
     Active Substance: TEPRENONE
     Route: 048
     Dates: start: 20120620
  7. LASIX [Concomitant]
     Active Substance: FUROSEMIDE
     Indication: Pleural effusion
     Route: 048
     Dates: start: 20120824, end: 20120827
  8. PRIMPERAN [Concomitant]
     Active Substance: METOCLOPRAMIDE HYDROCHLORIDE
     Indication: Nausea
     Route: 048
     Dates: start: 20120901, end: 20120903
  9. NOVAMIN [Concomitant]
     Indication: Nausea
     Route: 048
     Dates: start: 20120901, end: 20120903

REACTIONS (2)
  - Anaemia [Recovered/Resolved]
  - Tumour haemorrhage [Recovered/Resolved]

NARRATIVE: CASE EVENT DATE: 20120906
